FAERS Safety Report 18918909 (Version 3)
Quarter: 2022Q4

REPORT INFORMATION
  Report Type: Spontaneous
  Country: CA (occurrence: CA)
  Receive Date: 20210220
  Receipt Date: 20221228
  Transmission Date: 20230112
  Serious: Yes (Other)
  Sender: FDA-Public Use
  Company Number: CA-TAKEDA-2021TUS009781

PATIENT
  Sex: Female

DRUGS (9)
  1. MESALAMINE [Suspect]
     Active Substance: MESALAMINE
     Indication: Colitis ulcerative
     Route: 065
  2. BUDESONIDE [Suspect]
     Active Substance: BUDESONIDE
     Indication: Colitis ulcerative
     Route: 065
  3. CALCIUM CARBONATE [Concomitant]
     Active Substance: CALCIUM CARBONATE
     Route: 065
  4. ENTYVIO [Concomitant]
     Active Substance: VEDOLIZUMAB
     Route: 042
  5. FOLIC ACID [Concomitant]
     Active Substance: FOLIC ACID
     Route: 065
  6. FRAGMIN [Concomitant]
     Active Substance: DALTEPARIN SODIUM
     Route: 042
  7. VENOFER [Concomitant]
     Active Substance: IRON SUCROSE
     Route: 065
  8. DALTEPARIN SODIUM [Concomitant]
     Active Substance: DALTEPARIN SODIUM
     Route: 065
  9. SACCHARATED IRON OXIDE [Concomitant]
     Active Substance: IRON SUCROSE
     Route: 065

REACTIONS (2)
  - Drug ineffective [Not Recovered/Not Resolved]
  - Anaphylactic reaction [Not Recovered/Not Resolved]
